FAERS Safety Report 25832454 (Version 1)
Quarter: 2025Q3

REPORT INFORMATION
  Report Type: Spontaneous
  Country: US (occurrence: None)
  Receive Date: 20250921
  Receipt Date: 20250921
  Transmission Date: 20251020
  Serious: Yes (Hospitalization)
  Sender: FDA-CTU
  Company Number: None

PATIENT
  Sex: Male

DRUGS (2)
  1. VYNDAMAX [Suspect]
     Active Substance: TAFAMIDIS
     Indication: Cardiac amyloidosis
     Dosage: FREQUENCY : DAILY;?
     Route: 048
     Dates: start: 20241016
  2. VYNDAMAX [Suspect]
     Active Substance: TAFAMIDIS
     Indication: Hypertrophic cardiomyopathy

REACTIONS (1)
  - Oedema peripheral [None]
